FAERS Safety Report 19631449 (Version 1)
Quarter: 2021Q3

REPORT INFORMATION
  Report Type: Spontaneous
  Country: US (occurrence: US)
  Receive Date: 20210729
  Receipt Date: 20210729
  Transmission Date: 20211014
  Serious: No
  Sender: FDA-Public Use
  Company Number: US-MYLANLABS-2021M1044814

PATIENT
  Sex: Female
  Weight: 69 kg

DRUGS (2)
  1. CLONIDINE TRANSDERMAL SYSTEM [Suspect]
     Active Substance: CLONIDINE
     Indication: HYPERTENSION
     Dosage: 0.2 MILLIGRAM, QD, 1 PATCH PER WEEK
     Route: 062
     Dates: end: 20210719
  2. CLONIDINE TRANSDERMAL SYSTEM [Suspect]
     Active Substance: CLONIDINE
     Indication: HYPERTENSION
     Dosage: UNK
     Dates: start: 2020

REACTIONS (8)
  - Feeling abnormal [Recovered/Resolved]
  - Oropharyngeal discomfort [Recovered/Resolved]
  - Nasal inflammation [Recovered/Resolved]
  - Nasal discomfort [Recovered/Resolved]
  - Diarrhoea [Recovered/Resolved]
  - Throat irritation [Recovered/Resolved]
  - Anorectal discomfort [Recovered/Resolved]
  - Nausea [Recovered/Resolved]
